FAERS Safety Report 7004270-5 (Version None)
Quarter: 2010Q3

REPORT INFORMATION
  Report Type: 
  Country: None (occurrence: None)
  Receive Date: 20100921
  Receipt Date: 20100906
  Transmission Date: 20110219
  Serious: Yes (Other)
  Sender: FDA-Public Use
  Company Number: JP-RANBAXY-2010RR-38137

PATIENT
  Age: 72 Year
  Sex: Female

DRUGS (6)
  1. FENOFIBRATE [Suspect]
     Indication: HYPERLIPIDAEMIA
     Dosage: 100 MG, UNK
     Route: 048
     Dates: start: 20100506, end: 20100701
  2. OLMESARTAN MEDOXOMIL [Concomitant]
     Dosage: UNK
     Dates: start: 20080701
  3. AZELNIDIPINE [Concomitant]
     Dosage: UNK
     Route: 065
     Dates: start: 20080701
  4. ALENDRONATE SODIUM HYDRATE [Concomitant]
     Dosage: UNK
     Dates: start: 20080225
  5. ETIZOLAM [Concomitant]
     Dosage: UNK
     Route: 065
     Dates: start: 20080701
  6. BROTIZOLAM [Concomitant]
     Dosage: UNK
     Route: 065
     Dates: start: 20080701

REACTIONS (2)
  - DERMATITIS [None]
  - LIVER DISORDER [None]
